FAERS Safety Report 8361124-X (Version None)
Quarter: 2012Q2

REPORT INFORMATION
  Report Type: 
  Country: None (occurrence: None)
  Receive Date: 20120515
  Receipt Date: 20120502
  Transmission Date: 20120825
  Serious: Yes (Life-Threatening, Hospitalization)
  Sender: FDA-Public Use
  Company Number: FR-ROCHE-1065284

PATIENT
  Sex: Male

DRUGS (7)
  1. AZATHIOPRINE [Suspect]
     Indication: PRODUCT USED FOR UNKNOWN INDICATION
     Dosage: CUMULATIVE DOSE 730 G.
     Route: 048
     Dates: start: 20020101, end: 20120326
  2. FLUOROURACIL [Concomitant]
     Dates: start: 20120216
  3. LEUCOVORIN CALCIUM [Concomitant]
     Dates: start: 20120216
  4. AZATHIOPRINE [Suspect]
     Dates: start: 20120216
  5. MABTHERA [Suspect]
     Indication: PRODUCT USED FOR UNKNOWN INDICATION
     Route: 042
     Dates: start: 20050913, end: 20110711
  6. METHYLPREDNISONE (UNK INGREDIENTS) [Concomitant]
     Dates: start: 20120216
  7. MODOPAR [Concomitant]
     Dates: start: 20110701

REACTIONS (3)
  - METASTASES TO LIVER [None]
  - COLON CANCER [None]
  - TRANSITIONAL CELL CARCINOMA [None]
